FAERS Safety Report 25689018 (Version 2)
Quarter: 2025Q3

REPORT INFORMATION
  Report Type: Report from Study
  Country: US (occurrence: US)
  Receive Date: 20250818
  Receipt Date: 20250911
  Transmission Date: 20251021
  Serious: Yes (Hospitalization, Other)
  Sender: ALEXION PHARMACEUTICALS
  Company Number: US-AstraZeneca-CH-00927581A

PATIENT
  Sex: Female
  Weight: 84.277 kg

DRUGS (4)
  1. TEZEPELUMAB [Suspect]
     Active Substance: TEZEPELUMAB
     Indication: Asthma
     Route: 065
  2. TEZEPELUMAB [Suspect]
     Active Substance: TEZEPELUMAB
  3. FUROSEMIDE [Concomitant]
     Active Substance: FUROSEMIDE
     Route: 065
  4. PREDNISONE [Concomitant]
     Active Substance: PREDNISONE
     Route: 065

REACTIONS (8)
  - Pulmonary oedema [Unknown]
  - Ileus [Unknown]
  - Drug effect less than expected [Unknown]
  - Respiratory tract congestion [Unknown]
  - Seasonal allergy [Unknown]
  - Sneezing [Unknown]
  - Wheezing [Unknown]
  - Oedema [Unknown]
